FAERS Safety Report 5619587-6 (Version None)
Quarter: 2008Q1

REPORT INFORMATION
  Report Type: 
  Country: None (occurrence: None)
  Receive Date: 20080208
  Receipt Date: 20080129
  Transmission Date: 20080703
  Serious: Yes (Hospitalization)
  Sender: FDA-Public Use
  Company Number: US-BAYER-200812902NA

PATIENT
  Age: 40 Year
  Sex: Female
  Weight: 69 kg

DRUGS (6)
  1. YAZ [Suspect]
     Indication: OVARIAN CYST
     Route: 048
     Dates: start: 20071101
  2. PREDNISONE TAB [Concomitant]
     Indication: ASTHMA
     Dates: start: 20080128
  3. SINGULAIR [Concomitant]
  4. ALLEGRA [Concomitant]
  5. FLOVENT [Concomitant]
  6. MAXAIR [Concomitant]

REACTIONS (4)
  - ASTHMA [None]
  - COUGH [None]
  - DYSPNOEA [None]
  - WHEEZING [None]
